FAERS Safety Report 24859200 (Version 1)
Quarter: 2025Q1

REPORT INFORMATION
  Report Type: Spontaneous
  Country: US (occurrence: US)
  Receive Date: 20250118
  Receipt Date: 20250118
  Transmission Date: 20250409
  Serious: No
  Sender: SANOFI AVENTIS
  Company Number: US-SA-2025SA015089

PATIENT
  Age: 8 Year
  Sex: Male

DRUGS (6)
  1. DUPIXENT [Suspect]
     Active Substance: DUPILUMAB
     Indication: Acute respiratory failure
     Dosage: 200 MG, QOW
     Route: 058
     Dates: start: 202411
  2. DUPIXENT [Suspect]
     Active Substance: DUPILUMAB
     Indication: Hypoxia
  3. DUPIXENT [Suspect]
     Active Substance: DUPILUMAB
     Indication: Pneumonia adenoviral
  4. DUPIXENT [Suspect]
     Active Substance: DUPILUMAB
     Indication: Fistula
  5. DUPIXENT [Suspect]
     Active Substance: DUPILUMAB
     Indication: Infectious pleural effusion
  6. DUPIXENT [Suspect]
     Active Substance: DUPILUMAB
     Indication: Premature baby

REACTIONS (2)
  - Injection site pain [Unknown]
  - Product use in unapproved indication [Unknown]

NARRATIVE: CASE EVENT DATE: 20241101
